FAERS Safety Report 9106606 (Version 1)
Quarter: 2013Q1

REPORT INFORMATION
  Report Type: Report from Study
  Country: CA (occurrence: CA)
  Receive Date: 20130222
  Receipt Date: 20130222
  Transmission Date: 20140127
  Serious: Yes (Other)
  Sender: FDA-Public Use
  Company Number: CA-UCBSA-074666

PATIENT
  Age: 53 Year
  Sex: Female
  Weight: 73 kg

DRUGS (10)
  1. CIMZIA [Suspect]
     Indication: RHEUMATOID ARTHRITIS
     Route: 058
     Dates: start: 20130107, end: 20130204
  2. FOLIC ACID [Concomitant]
     Indication: RHEUMATOID ARTHRITIS
     Route: 048
  3. PLAQUENIL [Concomitant]
     Indication: RHEUMATOID ARTHRITIS
     Dosage: 400 MG 2 UNITS TAKEN 6 TIMES A WEEK
     Route: 048
     Dates: start: 1996
  4. METHOTREXATE [Concomitant]
     Indication: RHEUMATOID ARTHRITIS
     Dosage: PO/SC
     Route: 058
     Dates: start: 1996
  5. ZANTAC [Concomitant]
     Route: 048
  6. VITAMIN C [Concomitant]
     Dosage: 1 GM / D
  7. VITAMIN D [Concomitant]
     Dosage: 2000 IU / D
  8. CALCIUM [Concomitant]
     Dosage: 1 GM / D
  9. MULTIVITAMIN [Concomitant]
  10. B COMPLEX [Concomitant]

REACTIONS (7)
  - Oral herpes [Recovered/Resolved]
  - Fungal infection [Not Recovered/Not Resolved]
  - Injection site reaction [Recovering/Resolving]
  - Hot flush [Recovered/Resolved]
  - Abdominal discomfort [Not Recovered/Not Resolved]
  - Abdominal distension [Not Recovered/Not Resolved]
  - Diarrhoea [Not Recovered/Not Resolved]
